FAERS Safety Report 7406399-6 (Version None)
Quarter: 2011Q2

REPORT INFORMATION
  Report Type: 
  Country: None (occurrence: None)
  Receive Date: 20110411
  Receipt Date: 20110330
  Transmission Date: 20111010
  Serious: Yes (Other)
  Sender: FDA-Public Use
  Company Number: PHHY2011US26756

PATIENT
  Sex: Female

DRUGS (15)
  1. TAB-A-VITE [Concomitant]
     Dosage: UNK
  2. ENSURE PLUS [Concomitant]
     Dosage: UNK, BID
  3. CRANBERRY JUICE POWDER [Concomitant]
     Dosage: 425 MG, BID
  4. METAMUCIL-2 [Concomitant]
     Dosage: UNK, EVERY DAY
  5. METOPROLOL TARTRATE [Concomitant]
     Dosage: 28 MG, BID
  6. ZOCOR [Concomitant]
     Dosage: 20 MG, QD
  7. MACRODANTIN [Concomitant]
     Dosage: 50 MG, QD
  8. MIRALAX [Concomitant]
     Dosage: 17 G, UNK
  9. CALCIUM WITH VITAMIN D [Concomitant]
     Dosage: UNK, BID
  10. PEPCID [Concomitant]
     Dosage: UNK, 1X DAILY
  11. BACID [Concomitant]
     Dosage: 18 -250 MG, BID
  12. EXELON [Suspect]
     Dosage: 4.6 MG DAILY
     Route: 062
  13. FLOMAX [Concomitant]
     Dosage: 4 MG, QD
  14. BONIVA [Concomitant]
     Dosage: 150 MG, 1 X MONTH
  15. SENNA [Concomitant]
     Dosage: UNK, AS NEEDED

REACTIONS (5)
  - CEREBRAL HAEMORRHAGE [None]
  - MUSCULAR WEAKNESS [None]
  - FATIGUE [None]
  - URINARY TRACT INFECTION [None]
  - WRONG TECHNIQUE IN DRUG USAGE PROCESS [None]
